FAERS Safety Report 14082155 (Version 1)
Quarter: 2017Q4

REPORT INFORMATION
  Report Type: Spontaneous
  Country: US (occurrence: US)
  Receive Date: 20171013
  Receipt Date: 20171013
  Transmission Date: 20180321
  Serious: Yes (Hospitalization, Other)
  Sender: FDA-Public Use
  Company Number: US-SAOL THERAPEUTICS-2017SAO01470

PATIENT
  Age: 73 Year
  Sex: Male
  Weight: 116.1 kg

DRUGS (3)
  1. BACLOFEN. [Suspect]
     Active Substance: BACLOFEN
     Indication: MUSCLE SPASTICITY
     Route: 037
  2. BENZODIAZEPINE (UNSPECIFIED) [Suspect]
     Active Substance: BENZODIAZEPINE
  3. OPIATE (UNSPECIFIED) [Suspect]
     Active Substance: UNSPECIFIED INGREDIENT

REACTIONS (7)
  - Normocytic anaemia [Recovered/Resolved]
  - Implant site infection [Recovered/Resolved]
  - Sepsis [Recovered/Resolved]
  - Morganella infection [Recovered/Resolved]
  - Drug withdrawal syndrome [Recovered/Resolved]
  - Malnutrition [Recovered/Resolved]
  - Delirium [Recovered/Resolved]

NARRATIVE: CASE EVENT DATE: 201704
